FAERS Safety Report 10022780 (Version 1)
Quarter: 2014Q1

REPORT INFORMATION
  Report Type: Spontaneous
  Country: US (occurrence: US)
  Receive Date: 20140319
  Receipt Date: 20140319
  Transmission Date: 20141002
  Serious: Yes (Other)
  Sender: FDA-Public Use
  Company Number: US-PFIZER INC-2014078458

PATIENT
  Age: 60 Year
  Sex: Female
  Weight: 74.83 kg

DRUGS (4)
  1. EFFEXOR XR [Suspect]
     Indication: MAJOR DEPRESSION
     Dosage: 300 MG (BY TAKING TWO CAPSULES OF 150MG TOGETHER), 1X/DAY
     Route: 048
     Dates: start: 1999
  2. TRAZODONE [Concomitant]
     Dosage: UNK
  3. GABAPENTIN [Concomitant]
     Dosage: UNK
  4. ALPRAZOLAM [Concomitant]
     Dosage: UNK

REACTIONS (5)
  - Breast cancer female [Unknown]
  - Breast pain [Unknown]
  - Nipple pain [Unknown]
  - Breast disorder [Unknown]
  - Cyst [Unknown]
